FAERS Safety Report 17464728 (Version 1)
Quarter: 2020Q1

REPORT INFORMATION
  Report Type: Spontaneous
  Country: CN (occurrence: CN)
  Receive Date: 20200226
  Receipt Date: 20200226
  Transmission Date: 20200409
  Serious: Yes (Death)
  Sender: FDA-Public Use
  Company Number: NVSC2020CN053710

PATIENT

DRUGS (6)
  1. PHENYTOIN SODIUM. [Concomitant]
     Active Substance: PHENYTOIN SODIUM
     Indication: SEIZURE PROPHYLAXIS
     Dosage: UNK
     Route: 048
  2. CYCLOSPORINE. [Suspect]
     Active Substance: CYCLOSPORINE
     Indication: PROPHYLAXIS AGAINST GRAFT VERSUS HOST DISEASE
     Dosage: 2.5 MG/KG, QD, FROM THE START OF CONDITIONING
     Route: 065
  3. MYCOPHENOLATE MOFETIL. [Suspect]
     Active Substance: MYCOPHENOLATE MOFETIL
     Indication: PROPHYLAXIS AGAINST GRAFT VERSUS HOST DISEASE
     Dosage: 15 MG/KG, Q12H, P.O. FROM THE START OF THE CONDITIONING UNTIL TERMINATION OF APPLICATION AT +50D
     Route: 065
  4. CYCLOPHOSPHAMIDE. [Concomitant]
     Active Substance: CYCLOPHOSPHAMIDE
     Indication: CORD BLOOD TRANSPLANT THERAPY
     Dosage: 60 MG/KG, QD, ON -4D TO -3D
     Route: 065
  5. CYCLOSPORINE. [Suspect]
     Active Substance: CYCLOSPORINE
     Dosage: 2.5 MG/KG, QD, UPON RECOVERY OF GASTROINTESTINAL FUNCTION FOLLOWING HEMATOPOIETIC RECONSTITUTION
     Route: 048
  6. NIMUSTINE [Concomitant]
     Active Substance: NIMUSTINE
     Indication: CORD BLOOD TRANSPLANT THERAPY
     Dosage: 2.5 MG/KG, QD, ON -3D
     Route: 065

REACTIONS (1)
  - Chronic graft versus host disease [Fatal]
